FAERS Safety Report 5403558-9 (Version None)
Quarter: 2007Q3

REPORT INFORMATION
  Report Type: 
  Country: None (occurrence: None)
  Receive Date: 20070730
  Receipt Date: 20070713
  Transmission Date: 20080115
  Serious: Yes (Other)
  Sender: FDA-Public Use
  Company Number: 8025572

PATIENT
  Age: 42 Year
  Sex: Male

DRUGS (3)
  1. PREDNISOLONE [Suspect]
     Indication: CROHN'S DISEASE
  2. HAEMOFILTRATION [Suspect]
     Indication: HEPATIC HAEMATOMA
  3. WARFARIN SODIUM [Concomitant]

REACTIONS (4)
  - CATHETER RELATED COMPLICATION [None]
  - DEVICE MIGRATION [None]
  - HAEMODIALYSIS [None]
  - VASCULAR RUPTURE [None]
